FAERS Safety Report 4267186-3 (Version None)
Quarter: 2004Q1

REPORT INFORMATION
  Report Type: 
  Country: None (occurrence: None)
  Receive Date: 20040107
  Receipt Date: 20031225
  Transmission Date: 20041129
  Serious: Yes (Life-Threatening, Disabling)
  Sender: FDA-Public Use
  Company Number: 2003AP02912

PATIENT
  Age: 3 Year
  Sex: Female
  Weight: 10.5 kg

DRUGS (12)
  1. OMEPRAZOLE [Suspect]
     Indication: REFLUX OESOPHAGITIS
     Dosage: 4 MG DAILY PO
     Route: 048
     Dates: start: 20030806, end: 20030817
  2. DEPAKENE [Concomitant]
  3. MUCODYNE [Concomitant]
  4. HOKUNALIN [Concomitant]
  5. MYSTAN [Concomitant]
  6. EXCEGRAN [Concomitant]
  7. MEPTIN [Concomitant]
  8. BISOLVON [Concomitant]
  9. ALFAROL [Concomitant]
  10. KAYTWO [Concomitant]
  11. DIPYRIDAMOLE [Concomitant]
  12. PHENOBAL [Concomitant]

REACTIONS (11)
  - CLOSTRIDIUM COLITIS [None]
  - COMA [None]
  - DEPRESSED LEVEL OF CONSCIOUSNESS [None]
  - HAEMODIALYSIS [None]
  - LABORATORY TEST ABNORMAL [None]
  - MELAENA [None]
  - RENAL FAILURE ACUTE [None]
  - RENAL TUBULAR ACIDOSIS [None]
  - RENAL TUBULAR DISORDER [None]
  - URINE PHOSPHATE INCREASED [None]
  - URINE POTASSIUM INCREASED [None]
